FAERS Safety Report 17662601 (Version 3)
Quarter: 2020Q2

REPORT INFORMATION
  Report Type: Not Available
  Country: US (occurrence: US)
  Receive Date: 20200413
  Receipt Date: 20200617
  Transmission Date: 20200713
  Serious: No
  Sender: FDA-Public Use
  Company Number: US-NEUROCRINE BIOSCIENCES INC.-2020NBI01139

PATIENT
  Age: 40 Year
  Sex: Male

DRUGS (10)
  1. OLANZAPINE. [Suspect]
     Active Substance: OLANZAPINE
     Indication: HALLUCINATION, AUDITORY
     Route: 048
     Dates: start: 20200502
  2. CLONAZEPAM. [Concomitant]
     Active Substance: CLONAZEPAM
     Indication: TARDIVE DYSKINESIA
  3. INGREZZA [Suspect]
     Active Substance: VALBENAZINE
     Indication: TARDIVE DYSKINESIA
     Route: 048
     Dates: start: 20200311, end: 20200318
  4. OLANZAPINE. [Suspect]
     Active Substance: OLANZAPINE
     Route: 048
     Dates: start: 2020, end: 2020
  5. COGENTIN [Concomitant]
     Active Substance: BENZTROPINE MESYLATE
     Indication: TARDIVE DYSKINESIA
     Route: 048
     Dates: start: 20200428
  6. CLONAZEPAM. [Concomitant]
     Active Substance: CLONAZEPAM
     Indication: ANXIETY
     Route: 048
  7. OLANZAPINE. [Suspect]
     Active Substance: OLANZAPINE
     Route: 048
     Dates: start: 2020
  8. NALTREXONE [Concomitant]
     Active Substance: NALTREXONE
     Indication: ALCOHOLISM
     Route: 048
     Dates: start: 20190408
  9. INGREZZA [Suspect]
     Active Substance: VALBENAZINE
     Route: 048
     Dates: start: 2020
  10. INGREZZA [Suspect]
     Active Substance: VALBENAZINE
     Route: 048
     Dates: start: 2020

REACTIONS (3)
  - Tremor [Recovered/Resolved]
  - Restlessness [Recovered/Resolved]
  - Anxiety [Recovered/Resolved]

NARRATIVE: CASE EVENT DATE: 20200317
